FAERS Safety Report 4474031-X (Version None)
Quarter: 2004Q4

REPORT INFORMATION
  Report Type: 
  Country: None (occurrence: None)
  Receive Date: 20041008
  Receipt Date: 20040917
  Transmission Date: 20050328
  Serious: Yes (Other)
  Sender: FDA-Public Use
  Company Number: USA030435645

PATIENT
  Age: 77 Year
  Sex: Female
  Weight: 53 kg

DRUGS (7)
  1. FORTEO [Suspect]
     Indication: OSTEOPOROSIS
     Dosage: 20 UG DAY
     Dates: start: 20030301
  2. ARICEPT [Concomitant]
  3. CELEXA [Concomitant]
  4. DIOVAN [Concomitant]
  5. MOBIC [Concomitant]
  6. NEXIUM [Concomitant]
  7. ULTRAM [Concomitant]

REACTIONS (6)
  - ANKLE FRACTURE [None]
  - FALL [None]
  - INJECTION SITE HAEMORRHAGE [None]
  - MEDICATION ERROR [None]
  - PHARMACEUTICAL PRODUCT COMPLAINT [None]
  - SCRATCH [None]
